FAERS Safety Report 5551646-9 (Version None)
Quarter: 2007Q4

REPORT INFORMATION
  Report Type: 
  Country: None (occurrence: None)
  Receive Date: 20071212
  Receipt Date: 20071129
  Transmission Date: 20080405
  Serious: Yes (Hospitalization)
  Sender: FDA-Public Use
  Company Number: US-ELI_LILLY_AND_COMPANY-US200707001796

PATIENT
  Sex: Female

DRUGS (9)
  1. FORTEO [Suspect]
     Indication: OSTEOPOROSIS
     Dosage: UNK, UNK
     Dates: start: 20070201, end: 20070101
  2. FORTEO [Suspect]
     Dates: start: 20070630
  3. DIOVAN [Concomitant]
  4. GABAPENTIN [Concomitant]
  5. POTASSIUM CHLORIDE [Concomitant]
  6. CALCIUM [Concomitant]
  7. VITAMIN D [Concomitant]
  8. ASPIRIN [Concomitant]
  9. CYMBALTA [Concomitant]

REACTIONS (3)
  - MEDICATION ERROR [None]
  - PHARMACEUTICAL PRODUCT COMPLAINT [None]
  - SURGERY [None]
